FAERS Safety Report 5843872-6 (Version None)
Quarter: 2008Q3

REPORT INFORMATION
  Report Type: 
  Country: None (occurrence: None)
  Receive Date: 20080811
  Receipt Date: 20080725
  Transmission Date: 20090109
  Serious: Yes (Other)
  Sender: FDA-Public Use
  Company Number: 2008SP013352

PATIENT
  Age: 48 Year
  Sex: Male

DRUGS (2)
  1. REBETOL [Suspect]
     Indication: HEPATITIS C
     Dates: start: 20070508, end: 20070601
  2. PEGASYS [Suspect]
     Indication: HEPATITIS C
     Dates: start: 20070508, end: 20070601

REACTIONS (2)
  - BRONCHOSPASM [None]
  - DYSPNOEA [None]
